FAERS Safety Report 13366775 (Version 1)
Quarter: 2017Q1

REPORT INFORMATION
  Report Type: Spontaneous
  Country: US (occurrence: US)
  Receive Date: 20170324
  Receipt Date: 20170324
  Transmission Date: 20170429
  Serious: Yes (Hospitalization)
  Sender: FDA-Public Use
  Company Number: US-B.I. PHARMACEUTICALS,INC./RIDGEFIELD-2017-BI-016015

PATIENT
  Sex: Male

DRUGS (1)
  1. TRADJENTA [Suspect]
     Active Substance: LINAGLIPTIN
     Indication: DIABETES MELLITUS
     Dosage: STRENGTH: 5MG, TABLET DAILY, ROUTE: ORAL, ADMINISTRATION CORRECT? YES, ACTION (S) TAKEN WITH PRODUCT
     Route: 048
     Dates: start: 2014

REACTIONS (1)
  - Vertigo [Unknown]
